FAERS Safety Report 5549354-3 (Version None)
Quarter: 2007Q4

REPORT INFORMATION
  Report Type: 
  Country: None (occurrence: None)
  Receive Date: 20071212
  Receipt Date: 20071203
  Transmission Date: 20080405
  Serious: Yes (Hospitalization)
  Sender: FDA-Public Use
  Company Number: ID-BAYER-200717613GPV

PATIENT

DRUGS (1)
  1. AVELOX [Suspect]
     Indication: TUBERCULOSIS
     Dosage: TOTAL DAILY DOSE: 400 MG  UNIT DOSE: 400 MG
     Route: 048
     Dates: start: 20071101

REACTIONS (2)
  - ASPHYXIA [None]
  - PRURITUS [None]
